FAERS Safety Report 7714898-2 (Version None)
Quarter: 2011Q3

REPORT INFORMATION
  Report Type: 
  Country: None (occurrence: None)
  Receive Date: 20110822
  Receipt Date: 20110804
  Transmission Date: 20111222
  Serious: Yes (Death, Other)
  Sender: FDA-Public Use
  Company Number: 2011MA011469

PATIENT
  Age: 44 Year

DRUGS (6)
  1. MIRTAZAPINE [Suspect]
  2. METHADONE HCL [Suspect]
     Dosage: 0.6 MG/L
  3. METHAMPHETAMINE HYDROCHLORIDE [Suspect]
  4. CHLORPROMAZINE [Suspect]
  5. DIAZEPAM [Suspect]
  6. CITALOPRAM HYDROBROMIDE [Suspect]

REACTIONS (8)
  - HAEMORRHAGE [None]
  - TOXICITY TO VARIOUS AGENTS [None]
  - MULTIPLE DRUG OVERDOSE [None]
  - PULMONARY OEDEMA [None]
  - HEPATOSPLENOMEGALY [None]
  - PNEUMONIA [None]
  - SNORING [None]
  - SCAR [None]
